FAERS Safety Report 17907063 (Version 1)
Quarter: 2020Q2

REPORT INFORMATION
  Report Type: Spontaneous
  Country: DE (occurrence: DE)
  Receive Date: 20200617
  Receipt Date: 20200617
  Transmission Date: 20200714
  Serious: Yes (Hospitalization)
  Sender: FDA-Public Use
  Company Number: DE-ACCORD-185380

PATIENT
  Age: 80 Year
  Sex: Female

DRUGS (6)
  1. LEVODOPA/BENSERAZID-CT [Concomitant]
     Dosage: 100MG/25MG, 0.5-0.5-0.5-0
  2. RAMIPRIL. [Suspect]
     Active Substance: RAMIPRIL
     Indication: PRODUCT USED FOR UNKNOWN INDICATION
     Dosage: 2.5 MG, 1-0-0-0
  3. CITALOPRAM [Concomitant]
     Active Substance: CITALOPRAM HYDROBROMIDE
     Dosage: 20 MG, 1-0-0-0
  4. TORASEMIDE [Suspect]
     Active Substance: TORSEMIDE
     Indication: PRODUCT USED FOR UNKNOWN INDICATION
     Dosage: 10 MG, 0.5-0-0-0
  5. LEVEMIR [Concomitant]
     Active Substance: INSULIN DETEMIR
     Dosage: 100 IE/ML, NACH SCHEMA
     Route: 058
  6. SIMVASTATIN. [Concomitant]
     Active Substance: SIMVASTATIN
     Dosage: 20 MG, 1-0-0-0

REACTIONS (6)
  - General physical health deterioration [Unknown]
  - Condition aggravated [Unknown]
  - Anaemia [Unknown]
  - Pallor [Unknown]
  - Electrolyte imbalance [Unknown]
  - Haematemesis [Unknown]
